FAERS Safety Report 6999897-0 (Version None)
Quarter: 2010Q3

REPORT INFORMATION
  Report Type: 
  Country: None (occurrence: None)
  Receive Date: 20100920
  Receipt Date: 20100722
  Transmission Date: 20110219
  Serious: Yes (Life-Threatening)
  Sender: FDA-Public Use
  Company Number: US-ASTRAZENECA-2010SE29321

PATIENT
  Age: 969 Month
  Sex: Male

DRUGS (2)
  1. SEROQUEL XR [Suspect]
     Indication: BIPOLAR DISORDER
     Route: 048
     Dates: start: 20100621, end: 20100628
  2. SEROQUEL XR [Suspect]
     Route: 048

REACTIONS (1)
  - SUICIDAL BEHAVIOUR [None]
